FAERS Safety Report 7381160-X (Version None)
Quarter: 2011Q1

REPORT INFORMATION
  Report Type: 
  Country: None (occurrence: None)
  Receive Date: 20110301
  Receipt Date: 20100519
  Transmission Date: 20110831
  Serious: Yes (Disabling, Other)
  Sender: FDA-Public Use
  Company Number: ALA_00741_2010

PATIENT
  Sex: Female

DRUGS (11)
  1. INSULIN [Concomitant]
  2. PHENERGAN HCL [Concomitant]
  3. NEXIUM [Concomitant]
  4. SLEEP MEDICATION [Concomitant]
  5. XANAX [Concomitant]
  6. BENADRYL [Concomitant]
  7. PAXIL [Concomitant]
  8. ZOLOFT [Concomitant]
  9. LANTUS [Concomitant]
  10. TAGAMET /00397401/ [Concomitant]
  11. REGLAN [Suspect]
     Indication: IMPAIRED GASTRIC EMPTYING
     Dosage: (DF ORAL)
     Route: 048
     Dates: start: 20090101

REACTIONS (2)
  - EXTRAPYRAMIDAL DISORDER [None]
  - DYSKINESIA [None]
